FAERS Safety Report 8032100-1 (Version None)
Quarter: 2012Q1

REPORT INFORMATION
  Report Type: 
  Country: None (occurrence: None)
  Receive Date: 20120109
  Receipt Date: 20120106
  Transmission Date: 20120608
  Serious: Yes (Hospitalization, Other)
  Sender: FDA-Public Use
  Company Number: US-ROCHE-1006228

PATIENT
  Sex: Female
  Weight: 76.272 kg

DRUGS (2)
  1. PREDNISONE TAB [Concomitant]
     Indication: PRODUCT USED FOR UNKNOWN INDICATION
  2. ACCUTANE [Suspect]
     Indication: ACNE
     Dates: start: 20010131, end: 20010201

REACTIONS (9)
  - RHEUMATOID ARTHRITIS [None]
  - COLITIS [None]
  - EMOTIONAL DISTRESS [None]
  - INFLAMMATORY BOWEL DISEASE [None]
  - DEPRESSION [None]
  - ANAEMIA [None]
  - INTESTINAL OBSTRUCTION [None]
  - CROHN'S DISEASE [None]
  - LARGE INTESTINE PERFORATION [None]
